FAERS Safety Report 7776498-8 (Version None)
Quarter: 2011Q3

REPORT INFORMATION
  Report Type: 
  Country: None (occurrence: None)
  Receive Date: 20110926
  Receipt Date: 20110922
  Transmission Date: 20111222
  Serious: Yes (Other)
  Sender: FDA-Public Use
  Company Number: US-PFIZER INC-2011227027

PATIENT
  Sex: Male
  Weight: 72.109 kg

DRUGS (9)
  1. CHANTIX [Suspect]
     Indication: SMOKING CESSATION THERAPY
     Dosage: 0.5 MG, 2X/DAY
     Route: 048
  2. REQUIP [Concomitant]
     Indication: BACK DISORDER
     Dosage: 4 MG, DAILY
  3. CHANTIX [Suspect]
     Dosage: UNK
     Route: 048
  4. CELEBREX [Suspect]
     Indication: ARTHRITIS
     Dosage: 400 MG, DAILY
  5. AMLODIPINE BESYLATE AND BENAZEPRIL HCL [Concomitant]
     Indication: BLOOD PRESSURE ABNORMAL
     Dosage: [AMLODIPINE BESYLATE 5 MG]/ [BENAZEPRIL HYDROCHLORIDE 20 MG],DAILY
  6. CYMBALTA [Concomitant]
     Indication: DEPRESSION
     Dosage: 60 MG, DAILY
  7. NEURONTIN [Concomitant]
     Indication: NEUROPATHY PERIPHERAL
     Dosage: 300 MG, AS NEEDED
  8. CHANTIX [Suspect]
     Dosage: 0.5 MG, DAILY
     Route: 048
     Dates: start: 20110912
  9. MELATONIN [Concomitant]
     Indication: SLEEP DISORDER
     Dosage: 5 MG, DAILY

REACTIONS (6)
  - RESPIRATORY TRACT CONGESTION [None]
  - BRONCHITIS [None]
  - HYPERSENSITIVITY [None]
  - EMPHYSEMA [None]
  - DYSPNOEA [None]
  - LIMB CRUSHING INJURY [None]
